FAERS Safety Report 19933451 (Version 5)
Quarter: 2022Q2

REPORT INFORMATION
  Report Type: Report from Study
  Country: FR (occurrence: None)
  Receive Date: 20211008
  Receipt Date: 20220514
  Transmission Date: 20220721
  Serious: Yes (Other)
  Sender: FDA-Public Use
  Company Number: FR-ROCHE-2926713

PATIENT
  Age: 77 Year
  Sex: Male
  Weight: 54 kg

DRUGS (4)
  1. ATEZOLIZUMAB [Suspect]
     Active Substance: ATEZOLIZUMAB
     Indication: Hepatocellular carcinoma
     Dosage: ON 28/SEP/2021, MOST RECENT DOSE 1220 MG PRIOR TO EVENT.
     Route: 041
     Dates: start: 20210928
  2. BEVACIZUMAB [Suspect]
     Active Substance: BEVACIZUMAB
     Indication: Hepatocellular carcinoma
     Dosage: ON 28/SEP/2021, MOST RECENT DOSE 400 MG PRIOR TO EVENT.
     Route: 042
     Dates: start: 20210928
  3. LERCANIDIPINE [Concomitant]
     Active Substance: LERCANIDIPINE
     Indication: Hypertension
     Dates: start: 20100901
  4. TITANOREINE CREAM [Concomitant]
     Indication: Haemorrhoids
     Dosage: 1 OTHER
     Route: 061
     Dates: start: 20210916, end: 20210923

REACTIONS (1)
  - Memory impairment [Recovered/Resolved]

NARRATIVE: CASE EVENT DATE: 20210929
